FAERS Safety Report 9924452 (Version 1)
Quarter: 2014Q1

REPORT INFORMATION
  Report Type: Spontaneous
  Country: BR (occurrence: None)
  Receive Date: 20140220
  Receipt Date: 20140220
  Transmission Date: 20141002
  Serious: Yes (Hospitalization)
  Sender: FDA-Public Use
  Company Number: DSU-2014-00308

PATIENT
  Age: 69 Year
  Sex: Female

DRUGS (1)
  1. OLMETEC ANLO [Suspect]
     Indication: HYPERTENSION
     Route: 048
     Dates: start: 20130521

REACTIONS (1)
  - Spinal operation [None]
